FAERS Safety Report 4645590-9 (Version None)
Quarter: 2005Q2

REPORT INFORMATION
  Report Type: 
  Country: None (occurrence: None)
  Receive Date: 20050331
  Receipt Date: 20050218
  Transmission Date: 20051028
  Serious: No
  Sender: FDA-Public Use
  Company Number: 05P-163-0286752-00

PATIENT
  Age: 40 Year
  Sex: Female
  Weight: 61.6892 kg

DRUGS (15)
  1. HUMIRA [Suspect]
     Indication: RHEUMATOID ARTHRITIS
     Dosage: 40 MG, 1IN 2 WK, SUBCUTANEOUS
     Route: 058
     Dates: start: 20040401, end: 20050103
  2. METHOTREXATE [Concomitant]
  3. ETANERCEPT [Concomitant]
  4. PREDNISONE [Concomitant]
  5. BUCINDOLOL HYDROCHLORIDE [Concomitant]
  6. ORAL CONTRACEPTIVE PILLS [Concomitant]
  7. FLUTICASONE PROPIONATE [Concomitant]
  8. FOLIC ACID [Concomitant]
  9. MULTI-VITAMINS [Concomitant]
  10. CALCIUM WITH VITAMIN D [Concomitant]
  11. COD-LIVER OIL [Concomitant]
  12. UBIDECARENONE [Concomitant]
  13. GLUCOSAMINE [Concomitant]
  14. LINSEED OIL [Concomitant]
  15. LEVOTHYROXINE SODIUM [Concomitant]

REACTIONS (3)
  - FATIGUE [None]
  - LYMPHOMA [None]
  - STOMACH DISCOMFORT [None]
